FAERS Safety Report 8655532 (Version 4)
Quarter: 2013Q3

REPORT INFORMATION
  Report Type: Report from Study
  Country: US (occurrence: US)
  Receive Date: 20120709
  Receipt Date: 20130826
  Transmission Date: 20140515
  Serious: Yes (Other)
  Sender: FDA-Public Use
  Company Number: US-ELI_LILLY_AND_COMPANY-US201202001532

PATIENT
  Age: 78 Year
  Sex: Female
  Weight: 82.09 kg

DRUGS (16)
  1. TERIPARATIDE [Suspect]
     Indication: OSTEOPOROSIS
     Dosage: 20 UG, QD
     Dates: start: 20120131, end: 20120202
  2. TERIPARATIDE [Suspect]
     Dosage: 20 UG, QD
     Dates: start: 20120309
  3. TERIPARATIDE [Suspect]
     Dosage: 20 UG, QD
  4. TERIPARATIDE [Suspect]
     Dosage: 20 UG, QD
  5. TERIPARATIDE [Suspect]
     Dosage: 20 UG, QD
     Dates: end: 201302
  6. PLAVIX [Concomitant]
     Dosage: UNK
  7. LEVOTHYROXINE [Concomitant]
     Dosage: UNK
  8. NAPROXEN [Concomitant]
     Dosage: UNK
  9. LASIX [Concomitant]
     Dosage: 40 MG, UNK
  10. KCL [Concomitant]
     Dosage: UNK
  11. PROTONIX [Concomitant]
     Dosage: UNK
  12. FLECAINIDE [Concomitant]
     Dosage: UNK
  13. SIMVASTATIN [Concomitant]
     Dosage: UNK
  14. ASA [Concomitant]
     Dosage: UNK
  15. CALCIUM [Concomitant]
     Dosage: 1200 MG, UNK
  16. VITAMIN D [Concomitant]
     Dosage: 2000 U, QD

REACTIONS (7)
  - Retinal detachment [Unknown]
  - Glaucoma [Unknown]
  - Cataract [Recovered/Resolved]
  - Bronchitis [Unknown]
  - Pneumonia [Unknown]
  - Metamorphopsia [Unknown]
  - Blood calcium increased [Recovered/Resolved]
